FAERS Safety Report 6751430-4 (Version None)
Quarter: 2010Q2

REPORT INFORMATION
  Report Type: 
  Country: None (occurrence: None)
  Receive Date: 20100602
  Receipt Date: 20090804
  Transmission Date: 20101027
  Serious: Yes (Death, Hospitalization, Other)
  Sender: FDA-Public Use
  Company Number: US-ROCHE-648706

PATIENT
  Age: 63 Year
  Sex: Male

DRUGS (8)
  1. GANCICLOVIR SODIUM [Suspect]
     Indication: CYTOMEGALOVIRUS INFECTION
     Route: 065
  2. FOSCARNET [Suspect]
     Indication: CYTOMEGALOVIRUS INFECTION
     Route: 065
  3. FOSCARNET [Suspect]
     Route: 065
  4. BUSULFEX [Suspect]
     Indication: B-CELL LYMPHOMA REFRACTORY
     Route: 065
  5. CYCLOPHOSPHAMIDE [Suspect]
     Indication: B-CELL LYMPHOMA REFRACTORY
     Route: 065
  6. ALEMTUZUMAB [Suspect]
     Indication: B-CELL LYMPHOMA REFRACTORY
     Dosage: TOTAL DOSE: 60 MG.V.
     Route: 065
  7. POSACONAZOLE [Suspect]
     Indication: INFECTION PROPHYLAXIS
     Dosage: WITH FOOD.
     Route: 048
  8. TACROLIMUS [Suspect]
     Indication: GRAFT VERSUS HOST DISEASE
     Route: 065

REACTIONS (10)
  - ACUTE GRAFT VERSUS HOST DISEASE IN SKIN [None]
  - BK VIRUS INFECTION [None]
  - CYTOMEGALOVIRUS VIRAEMIA [None]
  - DRUG INEFFECTIVE [None]
  - DYSPNOEA [None]
  - GASTROINTESTINAL DISORDER [None]
  - PNEUMONIA FUNGAL [None]
  - RESPIRATORY DISTRESS [None]
  - RESPIRATORY FAILURE [None]
  - TENDERNESS [None]
